FAERS Safety Report 6159423-5 (Version None)
Quarter: 2009Q2

REPORT INFORMATION
  Report Type: 
  Country: None (occurrence: None)
  Receive Date: 20090417
  Receipt Date: 20090415
  Transmission Date: 20091009
  Serious: Yes (Death)
  Sender: FDA-Public Use
  Company Number: PHHY2009CA13583

PATIENT
  Sex: Female

DRUGS (7)
  1. ACLASTA [Suspect]
     Indication: OSTEOPOROSIS
     Dosage: 5 MG
     Route: 042
     Dates: start: 20080709
  2. HUMIRA [Concomitant]
  3. PREDNISONE [Concomitant]
  4. METHOTREXATE [Concomitant]
     Route: 048
  5. AMITRIPTLINE HYDROCHLORIDE TAB [Concomitant]
     Route: 048
  6. LASIX [Concomitant]
     Route: 048
  7. HALOPERIDOL [Concomitant]
     Route: 048

REACTIONS (1)
  - DEATH [None]
